FAERS Safety Report 14487527 (Version 1)
Quarter: 2018Q1

REPORT INFORMATION
  Report Type: Spontaneous
  Country: US (occurrence: US)
  Receive Date: 20180204
  Receipt Date: 20180204
  Transmission Date: 20180509
  Serious: Yes (Death, Life-Threatening, Hospitalization)
  Sender: FDA-Public Use
  Company Number: None

PATIENT
  Sex: Female
  Weight: 36.9 kg

DRUGS (9)
  1. PROLIA [Concomitant]
     Active Substance: DENOSUMAB
  2. IRON [Concomitant]
     Active Substance: IRON
  3. MULTIVITAMIN [Concomitant]
     Active Substance: VITAMINS
  4. LOW-DOSE ASPIRIN [Concomitant]
     Active Substance: ASPIRIN
  5. TAGRISSO [Suspect]
     Active Substance: OSIMERTINIB
     Indication: NON-SMALL CELL LUNG CANCER
     Dosage: ?          QUANTITY:1 TABLET(S);?
     Route: 048
     Dates: start: 20171101, end: 20180127
  6. VITAMIN D3 [Concomitant]
     Active Substance: CHOLECALCIFEROL
  7. CARBIDOPA-LEVODOPA [Concomitant]
     Active Substance: CARBIDOPA\LEVODOPA
  8. FUROSEMIDE. [Concomitant]
     Active Substance: FUROSEMIDE
  9. TAGRISSO [Concomitant]
     Active Substance: OSIMERTINIB

REACTIONS (5)
  - Pneumonia [None]
  - Cardiac failure [None]
  - Arrhythmia [None]
  - Diarrhoea haemorrhagic [None]
  - Pneumonitis [None]

NARRATIVE: CASE EVENT DATE: 20180127
